FAERS Safety Report 25700032 (Version 1)
Quarter: 2025Q3

REPORT INFORMATION
  Report Type: Spontaneous
  Country: EU (occurrence: EU)
  Receive Date: 20250819
  Receipt Date: 20250819
  Transmission Date: 20251020
  Serious: Yes (Other)
  Sender: AMERICAN REGENT
  Company Number: EU-AMERICAN REGENT INC-2025003139

PATIENT
  Age: 82 Year
  Sex: Female

DRUGS (1)
  1. FERINJECT [Suspect]
     Active Substance: FERRIC CARBOXYMALTOSE
     Indication: Hypochromic anaemia
     Route: 042

REACTIONS (5)
  - Atrial fibrillation [Unknown]
  - Atrioventricular node dysfunction [Unknown]
  - Atrioventricular block complete [Unknown]
  - Sinus node dysfunction [Unknown]
  - Bradycardia [Unknown]
